FAERS Safety Report 24001324 (Version 1)
Quarter: 2024Q2

REPORT INFORMATION
  Report Type: Spontaneous
  Country: US (occurrence: None)
  Receive Date: 20240621
  Receipt Date: 20240621
  Transmission Date: 20240716
  Serious: Yes (Life-Threatening, Hospitalization, Disabling)
  Sender: FDA-Public Use
  Company Number: None

PATIENT
  Age: 89 Year
  Sex: Female
  Weight: 44.4 kg

DRUGS (22)
  1. ANDEXXA [Suspect]
     Active Substance: ANDEXANET ALFA
     Indication: Procoagulant therapy
     Dosage: FREQUENCY : ONCE;?
     Route: 041
     Dates: start: 20240619, end: 20240619
  2. ACETAMINOPHEN [Concomitant]
     Active Substance: ACETAMINOPHEN
     Dates: start: 20240619, end: 20240621
  3. ALBUMIN HUMAN [Concomitant]
     Active Substance: ALBUMIN HUMAN
     Dates: start: 20240619, end: 20240619
  4. DUONEB [Concomitant]
     Active Substance: ALBUTEROL SULFATE\IPRATROPIUM BROMIDE
     Dates: start: 20240619, end: 20240620
  5. bupivicaine w/ epi [Concomitant]
     Dates: start: 20240619, end: 20240619
  6. CALCIUM GLUCONATE [Concomitant]
     Active Substance: CALCIUM GLUCONATE
     Dates: start: 20240619, end: 20240620
  7. CEFAZOLIN [Concomitant]
     Active Substance: CEFAZOLIN
     Dates: start: 20240619, end: 20240619
  8. CEFTRIAXONE [Concomitant]
     Active Substance: CEFTRIAXONE\CEFTRIAXONE SODIUM
     Dates: start: 20240619, end: 20240619
  9. DEXAMETHASONE [Concomitant]
     Active Substance: DEXAMETHASONE
     Dates: start: 20240618, end: 20240618
  10. DILTIAZEM [Concomitant]
     Active Substance: DILTIAZEM
     Dates: start: 20240618, end: 20240621
  11. BENADRYL [Concomitant]
     Active Substance: DIPHENHYDRAMINE HYDROCHLORIDE
     Dates: start: 20240619, end: 20240619
  12. famotidinie [Concomitant]
     Dates: start: 20240619, end: 20240619
  13. FENTANYL [Concomitant]
     Active Substance: FENTANYL\FENTANYL CITRATE
     Dates: start: 20240619, end: 20240621
  14. HYDROMORPHONE [Concomitant]
     Active Substance: HYDROMORPHONE
     Dates: start: 20240619, end: 20240619
  15. IOHEXOL [Concomitant]
     Active Substance: IOHEXOL
     Dates: start: 20240619, end: 20240619
  16. LEVOTHYROXINE [Concomitant]
     Active Substance: LEVOTHYROXINE\LEVOTHYROXINE SODIUM
     Dates: end: 20240621
  17. LIDOCAINE [Concomitant]
     Active Substance: LIDOCAINE
     Dates: start: 20240618, end: 20240619
  18. MAGNESIUM [Concomitant]
     Active Substance: MAGNESIUM
     Dates: start: 20240619, end: 20240619
  19. METHYLPREDNISOLONE [Concomitant]
     Active Substance: METHYLPREDNISOLONE
     Dates: end: 20240620
  20. METOPROLOL [Concomitant]
     Active Substance: METOPROLOL
     Dates: start: 20240619, end: 20240619
  21. METRONIDAZOLE [Concomitant]
     Active Substance: METRONIDAZOLE
     Dates: start: 20240619, end: 20240621
  22. MIDAZOLAM [Concomitant]
     Active Substance: MIDAZOLAM
     Dates: end: 20240621

REACTIONS (4)
  - Unresponsive to stimuli [None]
  - Splenic infarction [None]
  - Splenic embolism [None]
  - Cerebral infarction [None]

NARRATIVE: CASE EVENT DATE: 20240619
